FAERS Safety Report 24393612 (Version 4)
Quarter: 2025Q4

REPORT INFORMATION
  Report Type: Report from Study
  Country: EU (occurrence: EU)
  Receive Date: 20241003
  Receipt Date: 20251224
  Transmission Date: 20260118
  Serious: Yes (Hospitalization, Other)
  Sender: SANDOZ
  Company Number: EU-SANDOZ-SDZ2024FR076044

PATIENT
  Age: 37 Year
  Sex: Male
  Weight: 86 kg

DRUGS (3)
  1. HYRIMOZ [Suspect]
     Active Substance: ADALIMUMAB-ADAZ
     Indication: Inflammatory bowel disease
     Dosage: 40 MG/15 DAYS
  2. HYRIMOZ [Suspect]
     Active Substance: ADALIMUMAB-ADAZ
  3. HYRIMOZ [Suspect]
     Active Substance: ADALIMUMAB-ADAZ

REACTIONS (1)
  - Henoch-Schonlein purpura [Recovered/Resolved]

NARRATIVE: CASE EVENT DATE: 20240806
